FAERS Safety Report 11998263 (Version 1)
Quarter: 2016Q1

REPORT INFORMATION
  Report Type: Report from Study
  Country: GE (occurrence: GE)
  Receive Date: 20160203
  Receipt Date: 20160203
  Transmission Date: 20160526
  Serious: Yes (Death, Other)
  Sender: FDA-Public Use
  Company Number: GE-GILEAD-2016-0194941

PATIENT
  Age: 65 Year
  Sex: Male

DRUGS (3)
  1. INTERFERON [Concomitant]
     Active Substance: INTERFERON
  2. RIBAVIRIN. [Concomitant]
     Active Substance: RIBAVIRIN
  3. SOFOSBUVIR [Suspect]
     Active Substance: SOFOSBUVIR
     Indication: CHRONIC HEPATITIS C
     Dosage: 400 MG, UNK
     Route: 048
     Dates: start: 20151007, end: 20151228

REACTIONS (2)
  - Renal failure [Fatal]
  - Enterocolitis [Fatal]
